FAERS Safety Report 4897607-4 (Version None)
Quarter: 2006Q1

REPORT INFORMATION
  Report Type: 
  Country: None (occurrence: None)
  Receive Date: 20060130
  Receipt Date: 20060130
  Transmission Date: 20060701
  Serious: Yes (Hospitalization, Other)
  Sender: FDA-Public Use
  Company Number: None

PATIENT
  Age: 48 Year
  Sex: Female
  Weight: 86.637 kg

DRUGS (1)
  1. CONTACT COLD AND FLU   MAXIMUM STRENGTH CONTACT [Suspect]
     Indication: NASOPHARYNGITIS
     Dosage: 1 PILL   EVERY 4-6 HOURS   PO  (1 DOSE TAKEN 2/7/04)
     Route: 048
     Dates: start: 20040207

REACTIONS (1)
  - MYOCARDIAL INFARCTION [None]
